FAERS Safety Report 25099185 (Version 3)
Quarter: 2025Q2

REPORT INFORMATION
  Report Type: Spontaneous
  Country: CH (occurrence: CH)
  Receive Date: 20250320
  Receipt Date: 20250402
  Transmission Date: 20250717
  Serious: Yes (Death)
  Sender: AMGEN
  Company Number: CH-BEH-2025199481

PATIENT
  Age: 84 Year
  Sex: Male
  Weight: 83.3 kg

DRUGS (13)
  1. TAVNEOS [Suspect]
     Active Substance: AVACOPAN
     Indication: Anti-neutrophil cytoplasmic antibody positive vasculitis
     Dosage: 30 MG, BID
     Route: 065
     Dates: start: 20250304, end: 20250313
  2. AMLODIPINE [Concomitant]
     Active Substance: AMLODIPINE BESYLATE
     Indication: Hypertension
     Dosage: 10 MG (1-0-0)
     Route: 065
     Dates: start: 20250228
  3. BACTRIM [Concomitant]
     Active Substance: SULFAMETHOXAZOLE\TRIMETHOPRIM
     Indication: Prophylaxis
     Route: 065
     Dates: start: 20250228
  4. BEXIN [Concomitant]
     Active Substance: DEXTROMETHORPHAN HYDROBROMIDE
     Indication: Cough
     Route: 065
     Dates: start: 20250228
  5. CALCIUM CARBONATE\CHOLECALCIFEROL [Concomitant]
     Active Substance: CALCIUM CARBONATE\CHOLECALCIFEROL
     Indication: Osteoporosis prophylaxis
     Route: 065
     Dates: start: 20250228
  6. METHYLPREDNISOLONE [Concomitant]
     Active Substance: METHYLPREDNISOLONE
     Indication: Product used for unknown indication
     Route: 065
     Dates: start: 20250228, end: 20250301
  7. PANTOPRAZOLE [Concomitant]
     Active Substance: PANTOPRAZOLE
     Indication: Gastritis
     Dosage: 40 MG, QD
     Route: 065
     Dates: start: 202502
  8. VALTREX [Concomitant]
     Active Substance: VALACYCLOVIR HYDROCHLORIDE
     Indication: Herpes simplex
     Dosage: 500 MG, QD
     Route: 065
     Dates: start: 202502
  9. RITUXIMAB [Concomitant]
     Active Substance: RITUXIMAB
     Indication: Vasculitis
     Route: 042
     Dates: start: 20250301
  10. CYCLOPHOSPHAMIDE [Concomitant]
     Active Substance: CYCLOPHOSPHAMIDE
     Indication: Vasculitis
     Route: 042
     Dates: start: 20250303
  11. TORSEMIDE [Concomitant]
     Active Substance: TORSEMIDE
     Indication: Dehydration
     Route: 065
     Dates: start: 20250301, end: 20250311
  12. METOLAZONE [Concomitant]
     Active Substance: METOLAZONE
     Indication: Drainage
     Dates: start: 20250301, end: 20250310
  13. LASIX [Concomitant]
     Active Substance: FUROSEMIDE
     Indication: Dehydration
     Route: 065
     Dates: start: 20250301, end: 20250311

REACTIONS (2)
  - Shock haemorrhagic [Fatal]
  - Gastrointestinal haemorrhage [Fatal]

NARRATIVE: CASE EVENT DATE: 20250313
